FAERS Safety Report 19197011 (Version 1)
Quarter: 2021Q2

REPORT INFORMATION
  Report Type: Spontaneous
  Country: CN (occurrence: CN)
  Receive Date: 20210429
  Receipt Date: 20210429
  Transmission Date: 20210717
  Serious: Yes (Other)
  Sender: FDA-Public Use
  Company Number: CN-ZO SKIN HEALTH-2021ZOS00005

PATIENT
  Age: 42 Year
  Sex: Female

DRUGS (14)
  1. ARSENIC TRIOXIDE. [Suspect]
     Active Substance: ARSENIC TRIOXIDE
     Dosage: 0.16 MG/KG ON DAYS 1?14
     Route: 042
  2. DAUNORUBICIN [Concomitant]
     Active Substance: DAUNORUBICIN
     Indication: ACUTE PROMYELOCYTIC LEUKAEMIA
     Dosage: 40 MG/M2 DAYS 6?8
     Route: 042
  3. IDARUBICIN [Concomitant]
     Active Substance: IDARUBICIN
     Indication: ACUTE PROMYELOCYTIC LEUKAEMIA
     Dosage: 8 MG/M2 ON DAYS 2,12, AND 13
     Route: 065
  4. ARSENIC TRIOXIDE. [Suspect]
     Active Substance: ARSENIC TRIOXIDE
     Dosage: 0.16 MG/KG, DAYS 1?28
     Route: 042
  5. ARSENIC TRIOXIDE. [Suspect]
     Active Substance: ARSENIC TRIOXIDE
     Dosage: 0.16 MG/KG DAYS 1?19
     Route: 042
  6. TRETINOIN. [Suspect]
     Active Substance: TRETINOIN
     Dosage: 25 MG/M2 ON DAYS 16?31
     Route: 048
  7. TRETINOIN. [Suspect]
     Active Substance: TRETINOIN
     Dosage: 25 MG/M2 ON DAYS 1?14
     Route: 048
  8. TRETINOIN. [Suspect]
     Active Substance: TRETINOIN
     Dosage: UNK, 1X/DAY
     Route: 048
  9. IDARUBICIN [Concomitant]
     Active Substance: IDARUBICIN
     Dosage: 8 MG/M2 ON DAYS 1?3
     Route: 065
  10. TRETINOIN. [Suspect]
     Active Substance: TRETINOIN
     Indication: ACUTE PROMYELOCYTIC LEUKAEMIA
     Dosage: 25 MG/M2 DAYS 1?14
     Route: 048
  11. ARSENIC TRIOXIDE. [Suspect]
     Active Substance: ARSENIC TRIOXIDE
     Indication: ACUTE PROMYELOCYTIC LEUKAEMIA
     Dosage: 0.16 MG/KG DAYS 2?14
     Route: 042
  12. CYTARABINE. [Concomitant]
     Active Substance: CYTARABINE
     Indication: ACUTE PROMYELOCYTIC LEUKAEMIA
     Dosage: 100 MG/M2 ON DAYS 1?6
     Route: 065
  13. TRETINOIN. [Suspect]
     Active Substance: TRETINOIN
     Dosage: 25 MG/M2 ON DAYS 2?19
     Route: 048
  14. COMPOUND REALGAR NATURAL INDIGO [Suspect]
     Active Substance: HERBALS
     Indication: ACUTE PROMYELOCYTIC LEUKAEMIA
     Route: 048

REACTIONS (1)
  - Myelofibrosis [Recovered/Resolved]
